FAERS Safety Report 22377944 (Version 1)
Quarter: 2023Q2

REPORT INFORMATION
  Report Type: Spontaneous
  Country: NL (occurrence: NL)
  Receive Date: 20230529
  Receipt Date: 20230529
  Transmission Date: 20230722
  Serious: Yes (Hospitalization)
  Sender: FDA-Public Use
  Company Number: None

PATIENT
  Sex: Male

DRUGS (5)
  1. AMOXICILLIN\CLAVULANATE POTASSIUM [Suspect]
     Active Substance: AMOXICILLIN\CLAVULANATE POTASSIUM
     Indication: Periorbital cellulitis
     Dosage: 2 DOSAGE FORMS DAILY;  STRENGTH : 875/125MG / BRAND NAME NOT SPECIFIED
     Route: 065
     Dates: start: 20220601, end: 20220603
  2. ACYCLOVIR [Suspect]
     Active Substance: ACYCLOVIR
     Indication: Herpes zoster meningitis
     Dosage: 3000 MILLIGRAM DAILY; 3DD 1000MG FOR 7 DAYS (USED FOR 2 DAYS REALLY), INFUSE / BRAND NAME NOT SPECIF
     Route: 065
     Dates: start: 20220601, end: 20220603
  3. ACETAMINOPHEN [Concomitant]
     Active Substance: ACETAMINOPHEN
     Indication: Product used for unknown indication
     Dosage: 1000 MG (MILLIGRAM), / BRAND NAME NOT SPECIFIED
     Route: 065
  4. TRAMADOL [Concomitant]
     Active Substance: TRAMADOL
     Indication: Product used for unknown indication
     Dosage: MODIFIED RELEASE CAPSULE, 50 MG (MILLIGRAM), TRAMADOL CAPSULE MGA  50MG / BRAND NAME NOT SPECIFIED
  5. PERINDOPRIL ERBUMINE [Concomitant]
     Active Substance: PERINDOPRIL ERBUMINE
     Indication: Product used for unknown indication
     Dosage: 2 MG (MILLIGRAM), BRAND NAME NOT SPECIFIED

REACTIONS (2)
  - Crystal nephropathy [Recovered/Resolved]
  - Acute kidney injury [Recovered/Resolved]
